FAERS Safety Report 6917398 (Version 4)
Quarter: 2012Q4

REPORT INFORMATION
  Report Type: 
  Country: CA (occurrence: CA)
  Receive Date: 20090224
  Receipt Date: 20121109
  Transmission Date: 20130627
  Serious: Yes (Hospitalization, Other)
  Sender: FDA-Public Use
  Company Number: PHHY2009CA05955

PATIENT
  Sex: Female

DRUGS (2)
  1. SANDOSTATIN LAR [Suspect]
     Indication: METASTATIC CARCINOID TUMOUR
     Dosage: 40 mg, QMO
     Route: 030
     Dates: start: 20080711
  2. SANDOSTATIN LAR [Suspect]
     Dosage: 50 mg, QMO
     Dates: start: 20080711, end: 20090416

REACTIONS (19)
  - Confusional state [Unknown]
  - Malignant neoplasm progression [Unknown]
  - General physical health deterioration [Unknown]
  - Hepatic lesion [Unknown]
  - Fatigue [Unknown]
  - Asthenia [Unknown]
  - Hypophagia [Unknown]
  - Fluid intake reduced [Unknown]
  - Blood pressure decreased [Unknown]
  - Diarrhoea [Not Recovered/Not Resolved]
  - Retroperitoneal lymphadenopathy [Unknown]
  - Pain [Unknown]
  - Memory impairment [Unknown]
  - Weight decreased [Unknown]
  - Musculoskeletal stiffness [Unknown]
  - Abdominal pain upper [Unknown]
  - Dyspepsia [Unknown]
  - Heart rate irregular [Unknown]
  - Abdominal pain [Unknown]
